FAERS Safety Report 8577140-9 (Version None)
Quarter: 2012Q3

REPORT INFORMATION
  Report Type: 
  Country: None (occurrence: None)
  Receive Date: 20120807
  Receipt Date: 20120801
  Transmission Date: 20120928
  Serious: Yes (Hospitalization, Other)
  Sender: FDA-Public Use
  Company Number: ES-AMGEN-ESPSP2012036270

PATIENT
  Age: 80 Year
  Sex: Female

DRUGS (2)
  1. BLOOD TRANSFUSION, AUXILIARY PRODUCTS [Concomitant]
  2. ARANESP [Suspect]
     Indication: RENAL FAILURE CHRONIC
     Dosage: 60 MUG, QWK
     Dates: start: 20111214

REACTIONS (2)
  - TRANSIENT ISCHAEMIC ATTACK [None]
  - REFRACTORY ANAEMIA WITH RINGED SIDEROBLASTS [None]
